FAERS Safety Report 7790139-5 (Version None)
Quarter: 2011Q3

REPORT INFORMATION
  Report Type: 
  Country: None (occurrence: None)
  Receive Date: 20110930
  Receipt Date: 20100820
  Transmission Date: 20111222
  Serious: No
  Sender: FDA-Public Use
  Company Number: US-ASTRAZENECA-2010SE39313

PATIENT
  Age: 52 Year
  Sex: Female
  Weight: 99.8 kg

DRUGS (3)
  1. ARIMIDEX [Suspect]
     Route: 048
     Dates: start: 20100501
  2. THYROID MEDICATION [Concomitant]
  3. CORTEF [Concomitant]

REACTIONS (3)
  - LYMPHOEDEMA [None]
  - VITAMIN D DECREASED [None]
  - HYPERTENSION [None]
